FAERS Safety Report 11001989 (Version 1)
Quarter: 2015Q2

REPORT INFORMATION
  Report Type: Spontaneous
  Country: VN (occurrence: VN)
  Receive Date: 20150408
  Receipt Date: 20150408
  Transmission Date: 20150821
  Serious: Yes (Death)
  Sender: FDA-Public Use
  Company Number: VN-ASTRAZENECA-2015SE29959

PATIENT
  Age: 37 Year
  Sex: Male
  Weight: 58 kg

DRUGS (3)
  1. FENTANYL. [Suspect]
     Active Substance: FENTANYL
     Dosage: 100MCG/2ML (AS CITRATE) INJECTION
  2. MARCAIN [Suspect]
     Active Substance: BUPIVACAINE HYDROCHLORIDE
     Indication: ANAESTHESIA
     Route: 037
     Dates: start: 20140729
  3. NATRICHLORIDE [Concomitant]

REACTIONS (7)
  - Hypotension [Unknown]
  - Death [Fatal]
  - Skin discolouration [Unknown]
  - Feeling cold [Unknown]
  - Dyspnoea [Unknown]
  - Heart rate decreased [Unknown]
  - Hyperhidrosis [Unknown]
